FAERS Safety Report 25591894 (Version 1)
Quarter: 2025Q3

REPORT INFORMATION
  Report Type: Report from Study
  Country: US (occurrence: US)
  Receive Date: 20250722
  Receipt Date: 20250722
  Transmission Date: 20251020
  Serious: Yes (Other)
  Sender: TAKEDA
  Company Number: US-TAKEDA-2025TUS050624

PATIENT
  Sex: Female

DRUGS (10)
  1. PONATINIB [Suspect]
     Active Substance: PONATINIB
     Indication: Gastrointestinal stromal tumour
  2. PONATINIB [Suspect]
     Active Substance: PONATINIB
     Indication: Metastases to liver
     Dosage: 30 MILLIGRAM, QD
  3. PONATINIB [Suspect]
     Active Substance: PONATINIB
     Dosage: 30 MILLIGRAM, QD
  4. HYDROCODONE BITARTRATE [Concomitant]
     Active Substance: HYDROCODONE BITARTRATE
  5. MORPHINE SULFATE [Concomitant]
     Active Substance: MORPHINE SULFATE
  6. OLANZAPINE [Concomitant]
     Active Substance: OLANZAPINE
  7. LYRICA [Concomitant]
     Active Substance: PREGABALIN
  8. ZOFRAN [Concomitant]
     Active Substance: ONDANSETRON HYDROCHLORIDE
  9. ELIQUIS [Concomitant]
     Active Substance: APIXABAN
  10. KETOCONAZOLE [Concomitant]
     Active Substance: KETOCONAZOLE

REACTIONS (7)
  - Failure to thrive [Unknown]
  - Off label use [Unknown]
  - Vomiting [Unknown]
  - Diarrhoea [Unknown]
  - Abdominal pain upper [Unknown]
  - Nausea [Unknown]
  - Drug intolerance [Unknown]
